FAERS Safety Report 5967982-8 (Version None)
Quarter: 2008Q4

REPORT INFORMATION
  Report Type: 
  Country: None (occurrence: None)
  Receive Date: 20081126
  Receipt Date: 20081118
  Transmission Date: 20090506
  Serious: Yes (Hospitalization)
  Sender: FDA-Public Use
  Company Number: IE-ABBOTT-08P-229-0450084-00

PATIENT
  Sex: Female

DRUGS (5)
  1. HUMIRA [Suspect]
     Indication: CROHN'S DISEASE
     Route: 058
     Dates: start: 20080402, end: 20080402
  2. HUMIRA [Suspect]
     Route: 058
     Dates: start: 20080416, end: 20080416
  3. MAXIFLOXIN [Concomitant]
     Indication: PRODUCTIVE COUGH
     Dates: start: 20080423, end: 20080428
  4. AUGMENTIN '125' [Concomitant]
     Indication: COUGH
     Dosage: 1-2 G
     Dates: start: 20080430, end: 20080430
  5. CLARITHROMYCIN [Concomitant]
     Indication: COUGH
     Dates: start: 20080501

REACTIONS (1)
  - CROHN'S DISEASE [None]
